FAERS Safety Report 4487782-8 (Version None)
Quarter: 2004Q4

REPORT INFORMATION
  Report Type: 
  Country: None (occurrence: None)
  Receive Date: 20041025
  Receipt Date: 20041015
  Transmission Date: 20050328
  Serious: Yes (Death, Life-Threatening, Disabling, Other)
  Sender: FDA-Public Use
  Company Number: 2003-10-0459

PATIENT
  Age: 46 Year
  Sex: Male
  Weight: 78 kg

DRUGS (4)
  1. VIRAFERONPEG [Suspect]
     Indication: HEPATITIS C
     Dosage: 1 UG/KG QWK
     Dates: start: 20021227, end: 20030708
  2. REBETOL [Suspect]
     Indication: HEPATITIS C
     Dosage: 1.2-1.0 GM QD
     Dates: start: 20021227, end: 20030708
  3. REBETOL [Suspect]
     Indication: HEPATITIS C
     Dosage: 1200 MG QD
     Dates: start: 20021227, end: 20030404
  4. REBETOL [Suspect]
     Indication: HEPATITIS C
     Dosage: 1000 MG QD
     Dates: start: 20030404, end: 20030708

REACTIONS (8)
  - ASTHENIA [None]
  - CONDITION AGGRAVATED [None]
  - CONGESTIVE CARDIOMYOPATHY [None]
  - DYSPNOEA [None]
  - ORTHOPNOEA [None]
  - PLEURAL EFFUSION [None]
  - PULMONARY HYPERTENSION [None]
  - VIRAL INFECTION [None]
